FAERS Safety Report 4681956-9 (Version None)
Quarter: 2005Q2

REPORT INFORMATION
  Report Type: 
  Country: None (occurrence: None)
  Receive Date: 20050602
  Receipt Date: 20050520
  Transmission Date: 20051028
  Serious: Yes (Death, Life-Threatening, Hospitalization)
  Sender: FDA-Public Use
  Company Number: HQWYE950125MAY05

PATIENT
  Age: 68 Year
  Sex: Male

DRUGS (12)
  1. TAZOBAC (PIPERACILLIN/TAZOBACTAM, INJECTION) [Suspect]
     Dates: start: 20050212, end: 20050304
  2. ASPARAGINASE (ASPARAGINASE,) [Suspect]
     Indication: ACUTE LYMPHOCYTIC LEUKAEMIA
     Dates: start: 20050209, end: 20050307
  3. CERUBIDIN (DAUNORUBICIN HYDROCHLORIDE,) [Suspect]
     Dates: start: 20050209, end: 20050307
  4. CYCLOPHOSPHAMIDE [Suspect]
     Dates: start: 20050209, end: 20050307
  5. FUNGIZONE [Suspect]
     Dates: start: 20050201, end: 20050201
  6. METHOTREXATE [Suspect]
     Dates: start: 20050209, end: 20050307
  7. ONCOVIN [Suspect]
     Indication: ACUTE LYMPHOCYTIC LEUKAEMIA
     Dates: start: 20050209, end: 20050307
  8. VALTREX [Suspect]
     Dates: start: 20050220, end: 20050308
  9. VFEND [Suspect]
     Dates: start: 20050220, end: 20050308
  10. TORASEMIDE SODIUM (TORASEMIDE SODIUM) [Concomitant]
  11. NAVOBAN (TROPISETRON HYDROCHLORIDE) [Concomitant]
  12. BACTRIM [Concomitant]

REACTIONS (8)
  - BRONCHOPULMONARY ASPERGILLOSIS [None]
  - CARDIAC DISORDER [None]
  - CHOLESTASIS [None]
  - GASTROINTESTINAL HAEMORRHAGE [None]
  - HEPATIC ENCEPHALOPATHY [None]
  - HEPATIC STEATOSIS [None]
  - MULTI-ORGAN FAILURE [None]
  - RENAL FAILURE ACUTE [None]
